FAERS Safety Report 17160889 (Version 2)
Quarter: 2020Q1

REPORT INFORMATION
  Report Type: Spontaneous
  Country: US (occurrence: US)
  Receive Date: 20191216
  Receipt Date: 20200107
  Transmission Date: 20200409
  Serious: Yes (Hospitalization)
  Sender: FDA-Public Use
  Company Number: US-ALLERGAN-1938816US

PATIENT
  Sex: Female

DRUGS (6)
  1. ARMOUR THYROID [Suspect]
     Active Substance: THYROID, PORCINE
     Dosage: 120 MG
     Route: 048
     Dates: start: 20191021
  2. ACE INHIBITOR [Concomitant]
     Active Substance: UNSPECIFIED INGREDIENT
     Indication: HYPERTENSION
     Dosage: UNK
     Route: 048
  3. ARMOUR THYROID [Suspect]
     Active Substance: THYROID, PORCINE
     Dosage: 90 MG
     Route: 048
     Dates: start: 201910
  4. LOSARTAN. [Concomitant]
     Active Substance: LOSARTAN
     Indication: HYPERTENSION
     Dosage: UNK
     Route: 048
  5. ARMOUR THYROID [Suspect]
     Active Substance: THYROID, PORCINE
     Indication: THYROIDECTOMY
     Dosage: 60 MG, QD
     Route: 048
     Dates: start: 20191029
  6. ARMOUR THYROID [Suspect]
     Active Substance: THYROID, PORCINE
     Dosage: 60 MG, QD
     Route: 048
     Dates: start: 2009

REACTIONS (8)
  - Cerebrovascular accident [Recovering/Resolving]
  - Speech disorder [Recovering/Resolving]
  - Blood pressure increased [Recovered/Resolved]
  - Thrombosis [Recovering/Resolving]
  - Atrial fibrillation [Recovering/Resolving]
  - Heart rate increased [Recovering/Resolving]
  - Blood magnesium decreased [Recovered/Resolved]
  - Blood thyroid stimulating hormone increased [Recovering/Resolving]

NARRATIVE: CASE EVENT DATE: 201905
